FAERS Safety Report 7136472-1 (Version None)
Quarter: 2010Q4

REPORT INFORMATION
  Report Type: 
  Country: None (occurrence: None)
  Receive Date: 20101206
  Receipt Date: 20080221
  Transmission Date: 20110411
  Serious: Yes (Death, Hospitalization)
  Sender: FDA-Public Use
  Company Number: US-ACTELION-A-NJ2006-13366

PATIENT

DRUGS (17)
  1. BOSENTAN TABLET 125 MG US [Suspect]
     Indication: PULMONARY ARTERIAL HYPERTENSION
     Dosage: 125 MG, BID
     Route: 048
     Dates: start: 20060901, end: 20071201
  2. BOSENTAN TABLET 125 MG US [Suspect]
     Dosage: 62.5 MG, BID
     Route: 048
     Dates: start: 20060701, end: 20060901
  3. PHENOBARBITAL TAB [Concomitant]
     Dates: start: 19460101
  4. LASIX [Concomitant]
  5. VERAPAMIL [Concomitant]
  6. COUMADIN [Concomitant]
  7. SILDENAFIL [Concomitant]
  8. FOSINOPRIL SODIUM [Concomitant]
  9. PREDNISONE [Concomitant]
  10. ALBUTEROL [Concomitant]
  11. ADVAIR [Concomitant]
  12. POTASSIUM CHLORIDE [Concomitant]
  13. CALCIUM CHLORIDE [Concomitant]
  14. MULTI-VITAMIN [Concomitant]
  15. NEXIUM [Concomitant]
  16. OXYGEN [Concomitant]
  17. FLOLAN [Concomitant]

REACTIONS (22)
  - ARTHRITIS [None]
  - ASTHMA [None]
  - CHEST PAIN [None]
  - CLOT RETRACTION TIME SHORTENED [None]
  - CONDITION AGGRAVATED [None]
  - DEATH [None]
  - DEPRESSED MOOD [None]
  - DISEASE PROGRESSION [None]
  - DIZZINESS [None]
  - DYSPNOEA [None]
  - GAIT DISTURBANCE [None]
  - HEADACHE [None]
  - HEPATIC ENZYME INCREASED [None]
  - HYPOTENSION [None]
  - HYPOXIA [None]
  - OEDEMA PERIPHERAL [None]
  - OXYGEN SATURATION DECREASED [None]
  - PAIN IN EXTREMITY [None]
  - PAIN IN JAW [None]
  - PULMONARY HYPERTENSION [None]
  - STRESS [None]
  - THROMBOSIS [None]
